FAERS Safety Report 6740749-9 (Version None)
Quarter: 2010Q2

REPORT INFORMATION
  Report Type: 
  Country: None (occurrence: None)
  Receive Date: 20100524
  Receipt Date: 20100515
  Transmission Date: 20101027
  Serious: Yes (Other)
  Sender: FDA-Public Use
  Company Number: OPIR20100021

PATIENT
  Sex: Female

DRUGS (1)
  1. OPANA [Suspect]
     Indication: BRAIN INJURY
     Dates: end: 20100514

REACTIONS (5)
  - DIZZINESS [None]
  - ECONOMIC PROBLEM [None]
  - FEELING ABNORMAL [None]
  - TREATMENT NONCOMPLIANCE [None]
  - UNEVALUABLE EVENT [None]
